FAERS Safety Report 21778349 (Version 1)
Quarter: 2022Q4

REPORT INFORMATION
  Report Type: Spontaneous
  Country: US (occurrence: US)
  Receive Date: 20221226
  Receipt Date: 20221226
  Transmission Date: 20230113
  Serious: No
  Sender: FDA-Public Use
  Company Number: US-MIGRATION_PFIZER-2022BHV003020

PATIENT

DRUGS (1)
  1. NURTEC ODT [Suspect]
     Active Substance: RIMEGEPANT SULFATE
     Indication: Migraine
     Dosage: 75MG TABLET EVERY OTHER DAY FOR PREVENTION PLUS FOR ACUTE MIGRAINE ATTACKS
     Route: 065
     Dates: start: 202206

REACTIONS (1)
  - Therapeutic product effect variable [Unknown]
